FAERS Safety Report 13716323 (Version 1)
Quarter: 2017Q3

REPORT INFORMATION
  Report Type: Spontaneous
  Country: US (occurrence: US)
  Receive Date: 20170703
  Receipt Date: 20170703
  Transmission Date: 20171127
  Serious: No
  Sender: FDA-Public Use
  Company Number: None

PATIENT
  Age: 4 Year
  Sex: Female

DRUGS (1)
  1. OXYBUTYNIN 5MG/5ML [Suspect]
     Active Substance: OXYBUTYNIN
     Dosage: 4 ML AM, PM PO
     Route: 048

REACTIONS (1)
  - Accidental overdose [None]
